FAERS Safety Report 6322693-4 (Version None)
Quarter: 2009Q3

REPORT INFORMATION
  Report Type: 
  Country: None (occurrence: None)
  Receive Date: 20090824
  Receipt Date: 20090310
  Transmission Date: 20100115
  Serious: No
  Sender: FDA-Public Use
  Company Number: US-ABBOTT-09P-163-0562004-00

PATIENT
  Sex: Male

DRUGS (5)
  1. NIASPAN [Suspect]
     Indication: DRUG USE FOR UNKNOWN INDICATION
     Dates: start: 20070901, end: 20080901
  2. ASPIRIN [Concomitant]
     Indication: PROPHYLAXIS
  3. ASPIRIN [Concomitant]
  4. PREVACID [Concomitant]
     Indication: DRUG USE FOR UNKNOWN INDICATION
  5. BENICAR [Concomitant]
     Indication: DRUG USE FOR UNKNOWN INDICATION

REACTIONS (4)
  - DIZZINESS [None]
  - FLUSHING [None]
  - MALAISE [None]
  - PAIN [None]
